FAERS Safety Report 20445542 (Version 1)
Quarter: 2022Q1

REPORT INFORMATION
  Report Type: Spontaneous
  Country: US (occurrence: None)
  Receive Date: 20220208
  Receipt Date: 20220208
  Transmission Date: 20220423
  Serious: Yes (Other)
  Sender: FDA-Public Use
  Company Number: None

PATIENT
  Age: 56 Year
  Sex: Female
  Weight: 62.1 kg

DRUGS (5)
  1. .DELTA.9-TETRAHYDROCANNABINOL\CANNABIDIOL\HERBALS [Suspect]
     Active Substance: .DELTA.9-TETRAHYDROCANNABINOL\CANNABIDIOL\HERBALS
     Indication: Insomnia
     Dosage: OTHER QUANTITY : 1 GUMMY;?OTHER FREQUENCY : ONCE AT NIGHT;?
     Route: 048
     Dates: start: 20220205, end: 20220205
  2. CELEXA [Concomitant]
     Active Substance: CITALOPRAM HYDROBROMIDE
  3. KLONOPIN [Concomitant]
     Active Substance: CLONAZEPAM
  4. CALCIUM [Concomitant]
     Active Substance: CALCIUM
  5. VITAMIN D [Concomitant]
     Active Substance: VITAMIN D NOS

REACTIONS (7)
  - Inappropriate affect [None]
  - Crying [None]
  - Hallucination, visual [None]
  - Paranoia [None]
  - Hallucination, auditory [None]
  - Mood altered [None]
  - Social anxiety disorder [None]

NARRATIVE: CASE EVENT DATE: 20220205
